FAERS Safety Report 9350844 (Version 1)
Quarter: 2013Q2

REPORT INFORMATION
  Report Type: Spontaneous
  Country: US (occurrence: US)
  Receive Date: 20130617
  Receipt Date: 20130617
  Transmission Date: 20140414
  Serious: No
  Sender: FDA-Public Use
  Company Number: US-BAYER-2013-073793

PATIENT
  Sex: 0

DRUGS (1)
  1. MIDOL EXTENDED RELIEF CAPLET [Suspect]
     Indication: MUSCLE SPASMS

REACTIONS (5)
  - Feeling abnormal [None]
  - Nervousness [None]
  - Feeling jittery [None]
  - Feeling abnormal [None]
  - Drug ineffective [None]
